FAERS Safety Report 23336524 (Version 7)
Quarter: 2025Q1

REPORT INFORMATION
  Report Type: Report from Study
  Country: US (occurrence: US)
  Receive Date: 20231226
  Receipt Date: 20250312
  Transmission Date: 20250408
  Serious: Yes (Life-Threatening, Disabling, Other)
  Sender: ABBVIE
  Company Number: US-ABBVIE-5552616

PATIENT
  Age: 73 Year
  Sex: Female
  Weight: 95 kg

DRUGS (3)
  1. RINVOQ [Suspect]
     Active Substance: UPADACITINIB
     Indication: Rheumatoid arthritis
     Route: 048
     Dates: start: 20191108
  2. RINVOQ [Suspect]
     Active Substance: UPADACITINIB
     Indication: Rheumatoid arthritis
     Dosage: LAST ADMIN DATE: 2019
     Route: 048
     Dates: start: 2019
  3. RINVOQ [Suspect]
     Active Substance: UPADACITINIB
     Indication: Rheumatoid arthritis
     Route: 048
     Dates: start: 201910

REACTIONS (5)
  - Knee arthroplasty [Unknown]
  - Pain in extremity [Not Recovered/Not Resolved]
  - Knee arthroplasty [Recovering/Resolving]
  - Osteoporosis [Unknown]
  - Sciatica [Recovered/Resolved]

NARRATIVE: CASE EVENT DATE: 20221001
